FAERS Safety Report 21996176 (Version 1)
Quarter: 2023Q1

REPORT INFORMATION
  Report Type: Spontaneous
  Country: CN (occurrence: None)
  Receive Date: 20230215
  Receipt Date: 20230215
  Transmission Date: 20230418
  Serious: Yes (Other)
  Sender: FDA-Public Use
  Company Number: CN-ROCHE-3283046

PATIENT
  Age: 29 Year
  Sex: Male
  Weight: 95 kg

DRUGS (2)
  1. MABTHERA [Suspect]
     Active Substance: RITUXIMAB
     Indication: Hodgkin^s disease stage IV
     Route: 041
     Dates: start: 20221024
  2. MABTHERA [Suspect]
     Active Substance: RITUXIMAB
     Route: 041
     Dates: end: 20221026

REACTIONS (4)
  - Pyrexia [Recovered/Resolved]
  - Dyspnoea [Recovered/Resolved]
  - Chills [Recovered/Resolved]
  - Oxygen saturation decreased [Recovered/Resolved]

NARRATIVE: CASE EVENT DATE: 20221024
